FAERS Safety Report 7647579-4 (Version None)
Quarter: 2011Q3

REPORT INFORMATION
  Report Type: 
  Country: None (occurrence: None)
  Receive Date: 20110801
  Receipt Date: 20110721
  Transmission Date: 20111222
  Serious: Yes (Death)
  Sender: FDA-Public Use
  Company Number: US-JNJFOC-20101108829

PATIENT

DRUGS (1)
  1. ULTRAM [Suspect]
     Indication: PAIN
     Route: 048

REACTIONS (1)
  - DEATH [None]
